FAERS Safety Report 15298228 (Version 1)
Quarter: 2018Q3

REPORT INFORMATION
  Report Type: Spontaneous
  Country: US (occurrence: US)
  Receive Date: 20180820
  Receipt Date: 20180820
  Transmission Date: 20181010
  Serious: No
  Sender: FDA-Public Use
  Company Number: US-ALLERGAN-1838738US

PATIENT
  Age: 37 Year
  Sex: Male

DRUGS (1)
  1. ASENAPINE MALEATE ? BP [Suspect]
     Active Substance: ASENAPINE MALEATE
     Indication: PRODUCT USED FOR UNKNOWN INDICATION
     Dosage: UNK
     Route: 065

REACTIONS (6)
  - Hallucination [Unknown]
  - Schizophrenia [Unknown]
  - Delusion [Unknown]
  - Suspiciousness [Unknown]
  - Abnormal behaviour [Unknown]
  - Drug ineffective [Unknown]
